FAERS Safety Report 20986688 (Version 1)
Quarter: 2022Q2

REPORT INFORMATION
  Report Type: Spontaneous
  Country: US (occurrence: None)
  Receive Date: 20220619
  Receipt Date: 20220619
  Transmission Date: 20220720
  Serious: No
  Sender: FDA-Public Use
  Company Number: None

PATIENT
  Age: 57 Year
  Sex: Female
  Weight: 102.06 kg

DRUGS (23)
  1. CAPECITABINE [Suspect]
     Active Substance: CAPECITABINE
     Indication: Breast cancer
     Dosage: FREQUENCY : TWICE A DAY;?
     Route: 048
     Dates: start: 20210913
  2. ALBUTEROL SULFATE [Concomitant]
     Active Substance: ALBUTEROL SULFATE
  3. CALCIUM 600 AND VITAMIN D3 [Concomitant]
  4. CARVEDILOL [Concomitant]
     Active Substance: CARVEDILOL
  5. CLONIDINE [Concomitant]
     Active Substance: CLONIDINE
  6. EFFEXOR XR [Concomitant]
     Active Substance: VENLAFAXINE HYDROCHLORIDE
  7. ENOXAPARIN [Concomitant]
     Active Substance: ENOXAPARIN
  8. FAMOTIDINE [Concomitant]
     Active Substance: FAMOTIDINE
  9. FASLODEX [Concomitant]
     Active Substance: FULVESTRANT
  10. FERROUS GLUCONATE [Suspect]
     Active Substance: FERROUS GLUCONATE
  11. FLONASE [Concomitant]
     Active Substance: FLUTICASONE PROPIONATE
  12. MIRALAX [Concomitant]
     Active Substance: POLYETHYLENE GLYCOL 3350
  13. VITAMINS [Suspect]
     Active Substance: VITAMINS
  14. NYSTATIN [Concomitant]
     Active Substance: NYSTATIN
  15. OXYBUTYNIN [Concomitant]
     Active Substance: OXYBUTYNIN
  16. OXYCODONE [Concomitant]
     Active Substance: OXYCODONE
  17. PROCHLORPERAZINE [Concomitant]
     Active Substance: PROCHLORPERAZINE
  18. SERTRALINE [Concomitant]
     Active Substance: SERTRALINE HYDROCHLORIDE
  19. SUPER B-COMPLEX [Concomitant]
  20. HYDROCHLOROTHIAZIDE\TRIAMTERENE [Concomitant]
     Active Substance: HYDROCHLOROTHIAZIDE\TRIAMTERENE
  21. TYLENOL [Concomitant]
     Active Substance: ACETAMINOPHEN
  22. VITAMIN C [Concomitant]
     Active Substance: ASCORBIC ACID
  23. ZOMETA [Concomitant]
     Active Substance: ZOLEDRONIC ACID

REACTIONS (1)
  - Hip fracture [None]
